FAERS Safety Report 15975053 (Version 1)
Quarter: 2019Q1

REPORT INFORMATION
  Report Type: Spontaneous
  Country: US (occurrence: US)
  Receive Date: 20190218
  Receipt Date: 20190218
  Transmission Date: 20190418
  Serious: No
  Sender: FDA-Public Use
  Company Number: US-PFIZER INC-2019061911

PATIENT
  Age: 4 Decade
  Sex: Female

DRUGS (1)
  1. TALAZOPARIB. [Suspect]
     Active Substance: TALAZOPARIB
     Indication: BREAST CANCER
     Dosage: UNKNOWN
     Dates: start: 201901

REACTIONS (2)
  - Fatigue [Recovering/Resolving]
  - Alopecia [Unknown]
